FAERS Safety Report 10392784 (Version 1)
Quarter: 2014Q3

REPORT INFORMATION
  Report Type: Spontaneous
  Country: US (occurrence: None)
  Receive Date: 20140815
  Receipt Date: 20140815
  Transmission Date: 20150326
  Serious: Yes (Other)
  Sender: FDA-Public Use
  Company Number: 2014US01039

PATIENT

DRUGS (2)
  1. IRINOTECAN (IRINOTECAN) INJECTION, 180 MG/M2 [Suspect]
     Active Substance: IRINOTECAN
     Indication: COLORECTAL CANCER METASTATIC
     Dosage: 180 MG/M2, EVERY TWO WEEKS, INTRAVENOUS
     Route: 042
  2. KRN330 (KRN330) [Suspect]
     Active Substance: INVESTIGATIONAL PRODUCT
     Indication: COLORECTAL CANCER METASTATIC
     Dosage: 1 MG/KG, EVERY TWO WEEKS, INTRAVENOUS
     Route: 042

REACTIONS (3)
  - Febrile neutropenia [None]
  - Diarrhoea [None]
  - Dehydration [None]
